FAERS Safety Report 4607603-X (Version None)
Quarter: 2005Q1

REPORT INFORMATION
  Report Type: 
  Country: None (occurrence: None)
  Receive Date: 20050314
  Receipt Date: 20050310
  Transmission Date: 20050727
  Serious: Yes (Death)
  Sender: FDA-Public Use
  Company Number: PHFR2005GB01129

PATIENT
  Sex: Male

DRUGS (2)
  1. CLOZARIL [Suspect]
     Indication: MEDICATION ERROR
     Dosage: OVERDOSE OF UNKNOWN AMOUNT
     Route: 048
  2. ALCOHOL [Suspect]

REACTIONS (1)
  - OVERDOSE [None]
